FAERS Safety Report 8985841 (Version 1)
Quarter: 2012Q4

REPORT INFORMATION
  Report Type: 
  Country: US (occurrence: US)
  Receive Date: 20121226
  Receipt Date: 20121226
  Transmission Date: 20130627
  Serious: Yes (Other)
  Sender: FDA-Public Use
  Company Number: US-PFIZER INC-2012327241

PATIENT
  Age: 39 Year
  Sex: Male

DRUGS (1)
  1. LIPITOR [Suspect]
     Dosage: 20 mg, 1x/day

REACTIONS (3)
  - Coronary artery disease [Unknown]
  - Hypertension [Unknown]
  - Hyperlipidaemia [Unknown]
